FAERS Safety Report 9775835 (Version 2)
Quarter: 2014Q1

REPORT INFORMATION
  Report Type: Spontaneous
  Country: US (occurrence: US)
  Receive Date: 20131220
  Receipt Date: 20140117
  Transmission Date: 20141002
  Serious: Yes (Other)
  Sender: FDA-Public Use
  Company Number: US-VIIV HEALTHCARE LIMITED-A1054140A

PATIENT
  Age: 33 Year
  Sex: Male
  Weight: 75 kg

DRUGS (7)
  1. EPZICOM [Suspect]
     Indication: HIV INFECTION
     Dosage: 1TAB UNKNOWN
     Route: 048
     Dates: start: 20131117, end: 20131118
  2. TIVICAY [Suspect]
     Indication: HIV INFECTION
     Dosage: 1TAB PER DAY
     Route: 048
     Dates: start: 20131117, end: 20131118
  3. ATENOLOL + CHLORTHALIDONE [Concomitant]
  4. LISINOPRIL [Concomitant]
  5. BUPROPION SR [Concomitant]
  6. XANAX XR [Concomitant]
  7. MULTIVITAMIN [Concomitant]

REACTIONS (7)
  - Depressed level of consciousness [Recovered/Resolved]
  - Energy increased [Recovered/Resolved]
  - Feeling abnormal [Recovered/Resolved]
  - Fatigue [Recovered/Resolved]
  - Abdominal pain [Recovered/Resolved]
  - Insomnia [Recovered/Resolved]
  - Disorientation [Recovered/Resolved]
